FAERS Safety Report 18591296 (Version 1)
Quarter: 2020Q4

REPORT INFORMATION
  Report Type: Spontaneous
  Country: IL (occurrence: IL)
  Receive Date: 20201208
  Receipt Date: 20201208
  Transmission Date: 20210114
  Serious: Yes (Other)
  Sender: FDA-Public Use
  Company Number: IL-ASTRAZENECA-2020SF62578

PATIENT
  Age: 68 Year
  Sex: Female

DRUGS (5)
  1. VITAMIN D [Concomitant]
     Active Substance: VITAMIN D NOS
     Dosage: EVERY DAY TWO WEEKS BEFORE AND AFTER THE INJECTION.
     Route: 065
  2. XGEVA [Concomitant]
     Active Substance: DENOSUMAB
     Dosage: EEVERY THREE MONTH
     Route: 065
  3. XGEVA [Concomitant]
     Active Substance: DENOSUMAB
     Dosage: EVERY TWO MONTH
     Route: 065
  4. CALCIUM [Concomitant]
     Active Substance: CALCIUM
     Dosage: EVERY DAY TWO WEEKS BEFORE AND AFTER THE INJECTION.
     Route: 065
  5. TAGRISSO [Suspect]
     Active Substance: OSIMERTINIB
     Indication: LUNG NEOPLASM MALIGNANT
     Route: 048
     Dates: start: 201908, end: 202005

REACTIONS (5)
  - Pain in extremity [Recovered/Resolved]
  - Anaemia [Recovering/Resolving]
  - Myelosuppression [Unknown]
  - Asthenia [Recovered/Resolved]
  - Thrombocytopenia [Not Recovered/Not Resolved]

NARRATIVE: CASE EVENT DATE: 20190801
